FAERS Safety Report 19519241 (Version 3)
Quarter: 2022Q3

REPORT INFORMATION
  Report Type: Spontaneous
  Country: SE (occurrence: SE)
  Receive Date: 20210712
  Receipt Date: 20220713
  Transmission Date: 20221027
  Serious: Yes (Hospitalization, Other)
  Sender: FDA-Public Use
  Company Number: SE-GSKCCFEMEA-CASE-01253383_AE-46787

PATIENT

DRUGS (5)
  1. SEREVENT DISKUS [Suspect]
     Active Substance: SALMETEROL XINAFOATE
     Indication: Upper respiratory tract infection
     Dosage: 1 PUFF(S),1 INHALATION EACH TIME
     Route: 055
     Dates: start: 1997
  2. SEREVENT DISKUS [Suspect]
     Active Substance: SALMETEROL XINAFOATE
     Indication: Pneumonitis
  3. VENTOLIN [Concomitant]
     Active Substance: ALBUTEROL SULFATE
     Indication: Asthma
     Dosage: UNK
  4. BETAPRED [Concomitant]
     Active Substance: BETAMETHASONE SODIUM PHOSPHATE
     Indication: Product used for unknown indication
     Dosage: UNK
  5. DOXYCYCLINE [Concomitant]
     Active Substance: DOXYCYCLINE
     Indication: Product used for unknown indication
     Dosage: UNK

REACTIONS (13)
  - Polyarthritis [Recovered/Resolved]
  - Arthritis [Unknown]
  - Arthralgia [Unknown]
  - Mobility decreased [Unknown]
  - Pyrexia [Recovered/Resolved]
  - Haemoglobin abnormal [Unknown]
  - Liver function test abnormal [Unknown]
  - Red blood cell sedimentation rate abnormal [Unknown]
  - Pain [Recovered/Resolved]
  - Fatigue [Recovered/Resolved]
  - Haemoglobin decreased [Recovered/Resolved]
  - Hepatic infection [Recovered/Resolved]
  - Illness [Recovered/Resolved]

NARRATIVE: CASE EVENT DATE: 19970101
